FAERS Safety Report 24974441 (Version 1)
Quarter: 2025Q1

REPORT INFORMATION
  Report Type: Spontaneous
  Country: US (occurrence: US)
  Receive Date: 20250217
  Receipt Date: 20250217
  Transmission Date: 20250409
  Serious: No
  Sender: JOHNSON AND JOHNSON
  Company Number: US-JNJFOC-20250188651

PATIENT
  Age: 80 Year
  Sex: Female

DRUGS (1)
  1. CARVYKTI [Suspect]
     Active Substance: CILTACABTAGENE AUTOLEUCEL
     Indication: Product used for unknown indication
     Route: 065

REACTIONS (6)
  - Pyrexia [Unknown]
  - Candida infection [Unknown]
  - Decreased appetite [Unknown]
  - Weight decreased [Unknown]
  - Dysphagia [Unknown]
  - Fatigue [Unknown]
